FAERS Safety Report 10375061 (Version 1)
Quarter: 2014Q1

REPORT INFORMATION
  Report Type: Spontaneous
  Country: US (occurrence: None)
  Receive Date: 20140306
  Receipt Date: 20140306
  Transmission Date: 20141002
  Serious: Yes (Hospitalization, Other)
  Sender: FDA-Public Use
  Company Number: 163-21880-12121941

PATIENT
  Age: 75 Year
  Sex: Male

DRUGS (9)
  1. REVLIMID (LENALIDOMIDE) (5 MILLILGRAM) [Suspect]
     Indication: PLASMA CELL MYELOMA
     Route: 048
     Dates: start: 20121010, end: 2012
  2. ALLOPURINOL [Concomitant]
  3. HCTZ [Concomitant]
  4. VELCADE (BORTEZOMIB) [Concomitant]
  5. CYMBALTA [Concomitant]
  6. AMLODIPINE [Concomitant]
  7. NEXIUM (ESOMEPRAZOLE) [Concomitant]
  8. LOSARTAN [Concomitant]
  9. CRESTOR (ROSUVASTATIN) [Concomitant]

REACTIONS (2)
  - Pneumonia [None]
  - Tinnitus [None]
